FAERS Safety Report 13914346 (Version 1)
Quarter: 2017Q3

REPORT INFORMATION
  Report Type: Spontaneous
  Country: US (occurrence: US)
  Receive Date: 20170828
  Receipt Date: 20170828
  Transmission Date: 20171127
  Serious: No
  Sender: FDA-Public Use
  Company Number: US-ROCHE-1130366

PATIENT
  Sex: Male
  Weight: 40 kg

DRUGS (2)
  1. NUTROPIN [Suspect]
     Active Substance: SOMATROPIN
     Route: 065
     Dates: start: 199607
  2. NUTROPIN [Suspect]
     Active Substance: SOMATROPIN
     Indication: BLOOD GROWTH HORMONE DECREASED
     Route: 058
     Dates: start: 199203

REACTIONS (2)
  - Insulin-like growth factor decreased [Unknown]
  - Growth retardation [Unknown]
